FAERS Safety Report 7516322-1 (Version None)
Quarter: 2011Q2

REPORT INFORMATION
  Report Type: 
  Country: None (occurrence: None)
  Receive Date: 20110601
  Receipt Date: 20110526
  Transmission Date: 20111010
  Serious: Yes (Other)
  Sender: FDA-Public Use
  Company Number: GB-PFIZER INC-2011114890

PATIENT
  Age: 62 Year
  Sex: Male
  Weight: 107.8 kg

DRUGS (10)
  1. SUSTANON [Concomitant]
     Indication: LUTEINISING HORMONE DEFICIENCY
     Dosage: 250 MG, UNK
     Dates: start: 20030310
  2. SUSTANON [Concomitant]
     Indication: FOLLICLE-STIMULATING HORMONE DEFICIENCY
  3. SUSTANON [Concomitant]
     Indication: HYPOGONADISM
  4. LEVOTHYROXINE [Concomitant]
     Indication: BLOOD THYROID STIMULATING HORMONE DECREASED
     Dosage: 100 UG, 1X/DAY
     Dates: start: 20030228
  5. TESTOSTERONE [Concomitant]
     Indication: HYPOGONADISM
     Dosage: 50 MG, 1X/DAY
     Dates: start: 20090318
  6. HYDROCORTISONE [Concomitant]
     Indication: BLOOD CORTICOTROPHIN DECREASED
     Dosage: 30 MG, 1X/DAY
     Dates: start: 20030215
  7. ACETYLSALICYLIC ACID [Concomitant]
     Dosage: UNK
     Dates: start: 20090318
  8. ATORVASTATIN [Concomitant]
     Dosage: UNK
     Dates: start: 20090318
  9. SOMATROPIN [Suspect]
     Indication: HYPOPITUITARISM
     Dosage: 0.2 MG, 1X/DAY/7 INJECTIONS/WEEK
     Dates: start: 20031209
  10. LEVOTHYROXINE [Concomitant]
     Indication: PRIMARY HYPOTHYROIDISM
     Dosage: 75 UG, 1X/DAY
     Dates: start: 20051006

REACTIONS (1)
  - PITUITARY TUMOUR BENIGN [None]
